FAERS Safety Report 6322653-3 (Version None)
Quarter: 2009Q3

REPORT INFORMATION
  Report Type: 
  Country: None (occurrence: None)
  Receive Date: 20090824
  Receipt Date: 20090303
  Transmission Date: 20100115
  Serious: No
  Sender: FDA-Public Use
  Company Number: US-ABBOTT-09P-163-0557967-00

PATIENT
  Sex: Female
  Weight: 65.83 kg

DRUGS (15)
  1. NIASPAN [Suspect]
     Indication: LIPOPROTEIN (A) INCREASED
     Route: 048
     Dates: start: 20090212, end: 20090213
  2. MULTI-VITAMIN [Concomitant]
     Indication: MEDICAL DIET
     Dosage: UNKNOWN
     Route: 048
  3. CALCIUM WITH VITAMIN D [Concomitant]
     Indication: OSTEOPENIA
     Route: 048
  4. FOSAMAX [Concomitant]
     Indication: OSTEOPENIA
     Route: 048
  5. VITAMIN B COMPLEX CAP [Concomitant]
     Indication: MEDICAL DIET
     Dosage: UNKNOWN
     Route: 048
  6. FISH OIL [Concomitant]
     Indication: MEDICAL DIET
     Route: 048
  7. IRON WITH VITAMIN C [Concomitant]
     Indication: MEDICAL DIET
     Dosage: UNKNOWN
     Route: 048
  8. ASPIRIN [Concomitant]
     Indication: CARDIOVASCULAR DISORDER
     Route: 048
  9. CELLCEPT [Concomitant]
     Indication: RETINAL VEIN OCCLUSION
     Route: 048
  10. PERSANTINE [Concomitant]
     Indication: RETINAL VEIN OCCLUSION
     Route: 048
  11. PREDNISONE TAB [Concomitant]
     Indication: RETINAL VEIN OCCLUSION
     Route: 048
  12. ATENOLOL [Concomitant]
     Indication: HYPERTENSION
     Route: 048
  13. LISINOPRIL [Concomitant]
     Indication: HYPERTENSION
     Route: 048
  14. COUMADIN [Concomitant]
     Indication: LIPOPROTEIN (A)
     Route: 048
     Dates: start: 20090210
  15. PEPCID [Concomitant]
     Indication: PROPHYLAXIS
     Route: 048

REACTIONS (1)
  - HEADACHE [None]
